FAERS Safety Report 15790042 (Version 2)
Quarter: 2019Q1

REPORT INFORMATION
  Report Type: Spontaneous
  Country: US (occurrence: US)
  Receive Date: 20190104
  Receipt Date: 20190208
  Transmission Date: 20190417
  Serious: Yes (Disabling, Other)
  Sender: FDA-Public Use
  Company Number: US-REGENERON PHARMACEUTICALS, INC.-2018-50414

PATIENT

DRUGS (3)
  1. EYLEA [Suspect]
     Active Substance: AFLIBERCEPT
     Dosage: 2 MG, EVERY 4 WEEKS, RIGHT EYE (OD), RESTARTED
     Route: 031
     Dates: start: 20190110
  2. EYLEA [Suspect]
     Active Substance: AFLIBERCEPT
     Indication: NEOVASCULAR AGE-RELATED MACULAR DEGENERATION
     Dosage: 2 MG, EVERY 4 WEEKS, RIGHT EYE (OD)
     Route: 031
     Dates: start: 201409, end: 20181210
  3. EYLEA [Suspect]
     Active Substance: AFLIBERCEPT
     Indication: CHOROIDAL NEOVASCULARISATION
     Dosage: 2 MG, EVERY 4 WEEKS, RIGHT EYE (OD), LAST DOSE PRIOR EVENTS
     Route: 031
     Dates: start: 20181210, end: 20181210

REACTIONS (3)
  - Non-infectious endophthalmitis [Recovered/Resolved]
  - Vitrectomy [Recovered/Resolved]
  - Blindness transient [Recovered/Resolved]

NARRATIVE: CASE EVENT DATE: 20181220
